FAERS Safety Report 17194678 (Version 1)
Quarter: 2020Q1

REPORT INFORMATION
  Report Type: Spontaneous
  Country: US (occurrence: US)
  Receive Date: 20191223
  Receipt Date: 20191223
  Transmission Date: 20200409
  Serious: Yes (Disabling)
  Sender: FDA-Public Use
  Company Number: None

PATIENT
  Age: 65 Year
  Sex: Male
  Weight: 77.4 kg

DRUGS (5)
  1. GABAPENTIN. [Concomitant]
     Active Substance: GABAPENTIN
  2. POTASSIUM [Concomitant]
     Active Substance: POTASSIUM
  3. MAGNESIUM [Concomitant]
     Active Substance: MAGNESIUM
  4. CIPROFLOXACIN HCL 500MG TAB [Suspect]
     Active Substance: CIPROFLOXACIN
     Indication: URINARY TRACT INFECTION
     Dosage: ?          QUANTITY:28 CAPSULE(S);?
     Route: 048
  5. MULTI VITAMIN [Concomitant]
     Active Substance: VITAMINS

REACTIONS (4)
  - Neuropathy peripheral [None]
  - Nerve injury [None]
  - Tendonitis [None]
  - Impaired work ability [None]

NARRATIVE: CASE EVENT DATE: 20190422
